FAERS Safety Report 19966027 (Version 3)
Quarter: 2022Q4

REPORT INFORMATION
  Report Type: Spontaneous
  Country: CN (occurrence: CN)
  Receive Date: 20211018
  Receipt Date: 20221014
  Transmission Date: 20230112
  Serious: Yes (Hospitalization)
  Sender: FDA-Public Use
  Company Number: CN-PFIZER INC-202101318213

PATIENT
  Sex: Female
  Weight: 3.62 kg

DRUGS (2)
  1. PIPERACILLIN SODIUM\TAZOBACTAM SODIUM [Suspect]
     Active Substance: PIPERACILLIN SODIUM\TAZOBACTAM SODIUM
     Indication: Neonatal pneumonia
     Dosage: 0.300 G, 3X/DAY
     Route: 041
     Dates: start: 20210908, end: 20210908
  2. PIPERACILLIN SODIUM\TAZOBACTAM SODIUM [Suspect]
     Active Substance: PIPERACILLIN SODIUM\TAZOBACTAM SODIUM
     Indication: Hypersensitivity

REACTIONS (4)
  - Drug hypersensitivity [Recovered/Resolved]
  - Rash neonatal [Recovered/Resolved]
  - Flushing [Recovered/Resolved]
  - Papule [Recovered/Resolved]

NARRATIVE: CASE EVENT DATE: 20210908
